FAERS Safety Report 8352228-6 (Version None)
Quarter: 2012Q2

REPORT INFORMATION
  Report Type: 
  Country: None (occurrence: None)
  Receive Date: 20120509
  Receipt Date: 20120424
  Transmission Date: 20120825
  Serious: Yes (Other)
  Sender: FDA-Public Use
  Company Number: 1204-217

PATIENT
  Age: 72 Year
  Sex: Female

DRUGS (4)
  1. EYLEA [Suspect]
     Dosage: 2 MG, 2 TIMES, INTRAVITREAL
     Dates: start: 20120127
  2. AMBIEN [Concomitant]
  3. LEVOTHYROXINE SODIUM [Concomitant]
  4. ALLERGY MEDICATION (ALLERGY MEDICATION) [Concomitant]

REACTIONS (1)
  - HYPERTENSION [None]
